FAERS Safety Report 21090230 (Version 1)
Quarter: 2022Q3

REPORT INFORMATION
  Report Type: Spontaneous
  Country: GB (occurrence: GB)
  Receive Date: 20220715
  Receipt Date: 20220715
  Transmission Date: 20221026
  Serious: Yes (Other)
  Sender: FDA-Public Use
  Company Number: None

PATIENT
  Age: 82 Year
  Sex: Male
  Weight: 85 kg

DRUGS (18)
  1. ZOLEDRONIC ACID [Suspect]
     Active Substance: ZOLEDRONIC ACID
     Indication: Chest pain
     Dosage: UNK (VIAL)
     Route: 042
  2. APIXABAN [Concomitant]
     Active Substance: APIXABAN
     Indication: Product used for unknown indication
     Dosage: 5 MG, BID
     Route: 065
     Dates: start: 20220414
  3. CALCIUM CARBONATE\CHOLECALCIFEROL [Concomitant]
     Active Substance: CALCIUM CARBONATE\CHOLECALCIFEROL
     Indication: Product used for unknown indication
     Dosage: UNK, BID
     Route: 065
     Dates: start: 20220609, end: 20220609
  4. MICONAZOLE NITRATE [Concomitant]
     Active Substance: MICONAZOLE NITRATE
     Indication: Product used for unknown indication
     Dosage: UNK (APPLY TWICE DAILY TO GROIN AREA)
     Route: 065
     Dates: start: 20220504
  5. DOXAZOSIN [Concomitant]
     Active Substance: DOXAZOSIN MESYLATE
     Indication: Product used for unknown indication
     Dosage: 4 MG, QD (TAKE ONE DAILY IN THE EVENING)
     Route: 065
     Dates: start: 20220414
  6. DICLOFENAC DIETHYLAMINE [Concomitant]
     Active Substance: DICLOFENAC DIETHYLAMINE
     Indication: Product used for unknown indication
     Dosage: UNK (APPLY TDS TO AFFECTED AREA)
     Route: 065
     Dates: start: 20220414
  7. FINASTERIDE [Concomitant]
     Active Substance: FINASTERIDE
     Indication: Product used for unknown indication
     Dosage: 5 MG, QD
     Route: 065
     Dates: start: 20220414
  8. FLUCLOXACILLIN [Concomitant]
     Active Substance: FLUCLOXACILLIN
     Indication: Product used for unknown indication
     Dosage: 500 MG, QID
     Route: 065
     Dates: start: 20220527
  9. FLUOXETINE [Concomitant]
     Active Substance: FLUOXETINE HYDROCHLORIDE
     Indication: Product used for unknown indication
     Dosage: 20 MG, QD
     Route: 065
     Dates: start: 20220414
  10. FUROSEMIDE [Concomitant]
     Active Substance: FUROSEMIDE
     Indication: Product used for unknown indication
     Dosage: 40 MG, BID (TAKE TWO EVERY MORNING)
     Route: 065
     Dates: start: 20220414
  11. INVITA D3 [Concomitant]
     Indication: Product used for unknown indication
     Dosage: UNK (TAKE ONE CAPSULE ONCE WEEKLY FOR SIX WEEKS THEN SWITCH TO ADCAL D3 AS MAINTENANCE)
     Route: 065
     Dates: start: 20220609
  12. OXYCODONE HYDROCHLORIDE [Concomitant]
     Active Substance: OXYCODONE HYDROCHLORIDE
     Indication: Product used for unknown indication
     Dosage: 10 MG, BID
     Route: 065
     Dates: start: 20220414
  13. OMEPRAZOLE [Concomitant]
     Active Substance: OMEPRAZOLE
     Indication: Product used for unknown indication
     Dosage: 20 MG, BID (2 TWICE DAILY DAILY FOR BARRETS)
     Route: 065
     Dates: start: 20220414
  14. OXYCODONE [Concomitant]
     Active Substance: OXYCODONE
     Indication: Product used for unknown indication
     Dosage: UNK (2.5-5ML 4HRLY WHEN REQUIRED FOR PAIN, 5MG/5ML ORAL SOLUTION SUGAR FREE)
     Route: 065
     Dates: start: 20220413
  15. ACETAMINOPHEN [Concomitant]
     Active Substance: ACETAMINOPHEN
     Indication: Product used for unknown indication
     Dosage: 500 MG (ONE OR TWO TO BE TAKEN EVERY 4 TO 6 HOURS. NOT MORE THAN EIGHT TABLETS IN 24 HOURS)
     Route: 065
     Dates: start: 20220512
  16. LUPRON DEPOT [Concomitant]
     Active Substance: LEUPROLIDE ACETATE
     Indication: Product used for unknown indication
     Dosage: 1 DOSAGE FORM (EVERY THREE MONTHS FOR PROSTATE, 11.25MG POWDER AND SOLVENT FOR SUSPENSION)
     Route: 065
     Dates: start: 20220609
  17. RAMIPRIL [Concomitant]
     Active Substance: RAMIPRIL
     Indication: Product used for unknown indication
     Dosage: 2.5 MG, QD
     Route: 065
     Dates: start: 20220414
  18. SIMVASTATIN [Concomitant]
     Active Substance: SIMVASTATIN
     Indication: Product used for unknown indication
     Dosage: 20 MG, QD (ONE TO BE TAKEN AT NIGHT)
     Route: 065
     Dates: start: 20220414

REACTIONS (2)
  - Myalgia [Unknown]
  - Pyrexia [Unknown]

NARRATIVE: CASE EVENT DATE: 20220706
